FAERS Safety Report 18458029 (Version 1)
Quarter: 2020Q4

REPORT INFORMATION
  Report Type: Spontaneous
  Country: US (occurrence: US)
  Receive Date: 20201103
  Receipt Date: 20201103
  Transmission Date: 20210114
  Serious: No
  Sender: FDA-Public Use
  Company Number: US-BIODELIVERY SCIENCES INTERNATIONAL-2020BDSI0558

PATIENT
  Age: 76 Year
  Weight: 74.46 kg

DRUGS (1)
  1. BUPRENORPHINE. [Suspect]
     Active Substance: BUPRENORPHINE
     Indication: PRODUCT USED FOR UNKNOWN INDICATION
     Dosage: UNKNOWN; UNKNOWN
     Route: 002
     Dates: start: 20200623, end: 20200623

REACTIONS (3)
  - Nausea [Unknown]
  - Disorientation [Unknown]
  - Dizziness [Unknown]

NARRATIVE: CASE EVENT DATE: 202006
